FAERS Safety Report 5284895-8 (Version None)
Quarter: 2007Q2

REPORT INFORMATION
  Report Type: 
  Country: None (occurrence: None)
  Receive Date: 20070403
  Receipt Date: 20070323
  Transmission Date: 20071010
  Serious: Yes (Other)
  Sender: FDA-Public Use
  Company Number: US-AVENTIS-200712124US

PATIENT

DRUGS (1)
  1. LANTUS [Suspect]
     Dosage: DOSE: UNK

REACTIONS (2)
  - OVERDOSE [None]
  - SUICIDE ATTEMPT [None]
